FAERS Safety Report 8785582 (Version 1)
Quarter: 2012Q4

REPORT INFORMATION
  Report Type: Report from Study
  Country: JP (occurrence: JP)
  Receive Date: 20120914
  Receipt Date: 20120914
  Transmission Date: 20130627
  Serious: Yes (Other)
  Sender: FDA-Public Use
  Company Number: JP-009507513-1209JPN000691

PATIENT

DRUGS (15)
  1. PEGINTRON [Suspect]
     Indication: HEPATITIS C
     Dosage: 1.3 Microgram per kilogram, qw
     Route: 058
     Dates: start: 20120621, end: 20120705
  2. PEGINTRON [Suspect]
     Dosage: 1.1 Microgram per kilogram, qw
     Route: 058
     Dates: start: 20120712
  3. REBETOL [Suspect]
     Indication: HEPATITIS C
     Dosage: 800 mg, qd
     Route: 048
     Dates: start: 20120621, end: 20120712
  4. REBETOL [Suspect]
     Dosage: 600 mg, qd
     Route: 048
     Dates: start: 20120713
  5. TELAVIC [Suspect]
     Indication: HEPATITIS C
     Dosage: 1500 mg, qd
     Route: 048
     Dates: start: 20120621, end: 20120624
  6. TELAVIC [Suspect]
     Dosage: 1000 mg, qd
     Dates: start: 20120625
  7. ZYLORIC [Concomitant]
     Indication: HYPERURICAEMIA
     Dosage: 200 mg, qd; Formulation: POR
     Route: 048
     Dates: start: 20120612
  8. PROTECADIN [Concomitant]
     Indication: GASTROOESOPHAGEAL REFLUX DISEASE
     Dosage: 20 mg, qd; Formulation: POR
     Route: 048
     Dates: start: 20120628
  9. BASEN OD [Concomitant]
     Indication: DIABETES MELLITUS
     Dosage: 0.6 mg, qd; Formulation: POR
     Route: 048
  10. AMARYL [Concomitant]
     Indication: DIABETES MELLITUS
     Dosage: 1 mg, qd; Formulation: POR
     Route: 048
  11. OPALMON [Concomitant]
     Indication: SPINAL COLUMN STENOSIS
     Dosage: 5 Microgram, qd; Formulation: POR
     Route: 048
  12. GASTER [Concomitant]
     Indication: GASTROOESOPHAGEAL REFLUX DISEASE
     Dosage: 20 mg, qd; Formulation: POR
     Route: 048
     Dates: end: 20120627
  13. MAGCOROL P [Concomitant]
     Dosage: 50 g, qd; Formulation: POR
     Route: 048
     Dates: start: 20120626, end: 20120626
  14. ENSURE [Concomitant]
     Dosage: 250 ml, qd; Formulation: por
     Route: 048
     Dates: start: 20120627, end: 20120628
  15. GASCON [Concomitant]
     Dosage: 20 ml, qd; Formulation: DRO
     Route: 048
     Dates: start: 20120627, end: 20120627

REACTIONS (1)
  - Diarrhoea [Not Recovered/Not Resolved]
